FAERS Safety Report 9580201 (Version 2)
Quarter: 2013Q4

REPORT INFORMATION
  Report Type: Spontaneous
  Country: IT (occurrence: None)
  Receive Date: 20130930
  Receipt Date: 20131008
  Transmission Date: 20140711
  Serious: Yes (Other)
  Sender: FDA-Public Use
  Company Number: AUR-APL-2013-07637

PATIENT
  Age: 88 Year
  Sex: Female

DRUGS (6)
  1. RAMIPRIL [Suspect]
     Indication: HYPERTENSION
     Dosage: 1.25 MG ( 1.25 MG, 1 IN 1 D), ORAL
     Route: 048
     Dates: start: 20130601, end: 20130901
  2. CARDIRENE ( ACETYLSALICYLATE LYSINE) [Concomitant]
  3. NEXIUM ( ESOMEPRAZOLE MAGNESIUM) [Concomitant]
  4. CIPRALEX ( ESCITALOPRAM) [Concomitant]
  5. DONEPEZIL HYDROCHLORIDE ( DONEPEZIL HYDROCHLORIDE) [Concomitant]
  6. SIMVASTATIN ( SIMVASTATIN) [Concomitant]

REACTIONS (2)
  - Hypotension [None]
  - Pulse pressure increased [None]
